FAERS Safety Report 5726015-9 (Version None)
Quarter: 2008Q2

REPORT INFORMATION
  Report Type: 
  Country: None (occurrence: None)
  Receive Date: 20080502
  Receipt Date: 20080424
  Transmission Date: 20081010
  Serious: Yes (Hospitalization, Other)
  Sender: FDA-Public Use
  Company Number: PHFR2008GB01052

PATIENT
  Age: 36 Year
  Sex: Male

DRUGS (7)
  1. CLOZARIL [Suspect]
     Indication: SCHIZOPHRENIA
     Dosage: 100MG / DAY
     Route: 048
     Dates: start: 20060912, end: 20061002
  2. PROCYCLIDINE HYDROCHLORIDE 2MG TAB [Concomitant]
     Dosage: 20MG / DAY
     Route: 048
  3. DIAZEPAM [Concomitant]
     Indication: AGITATION
     Dosage: 10MG / DAY
     Route: 048
  4. ALBUTEROL [Concomitant]
     Indication: ASTHMA
     Dosage: UNK, QID
  5. VITAMIN B COMPLEX CAP [Concomitant]
     Indication: ALCOHOLISM
  6. THIAMINE [Concomitant]
     Indication: ALCOHOLISM
     Dosage: 200MG / DAY
     Route: 048
  7. AMPHETAMINE SULFATE [Concomitant]

REACTIONS (6)
  - CIRCULATORY COLLAPSE [None]
  - CYANOSIS [None]
  - DYSPNOEA [None]
  - HYPOTENSION [None]
  - PULSE ABNORMAL [None]
  - SEDATION [None]
